FAERS Safety Report 4475578-2 (Version None)
Quarter: 2004Q3

REPORT INFORMATION
  Report Type: 
  Country: None (occurrence: None)
  Receive Date: 20040923
  Receipt Date: 20040712
  Transmission Date: 20050211
  Serious: No
  Sender: FDA-Public Use
  Company Number: USA040772372

PATIENT
  Age: 60 Year
  Sex: Female

DRUGS (4)
  1. FORTEO [Suspect]
     Dates: start: 20031101
  2. SYNTHROID [Concomitant]
  3. VITAMIN D [Concomitant]
  4. VITAMIN K [Concomitant]

REACTIONS (1)
  - BONE DENSITY DECREASED [None]
